FAERS Safety Report 7682456-4 (Version None)
Quarter: 2011Q3

REPORT INFORMATION
  Report Type: 
  Country: None (occurrence: None)
  Receive Date: 20110815
  Receipt Date: 20110811
  Transmission Date: 20111222
  Serious: Yes (Death)
  Sender: FDA-Public Use
  Company Number: JM-B.I. PHARMACEUTICALS,INC./RIDGEFIELD-2011-CN-01130CN

PATIENT
  Sex: Female

DRUGS (7)
  1. O2 [Concomitant]
  2. ENALAPRIL MALEATE [Concomitant]
  3. SPIRIVA [Suspect]
     Indication: CHRONIC OBSTRUCTIVE PULMONARY DISEASE
     Dates: start: 20091101
  4. ADVAIR DISKUS 100/50 [Concomitant]
  5. BISOLVON [Concomitant]
  6. SLOW-K [Concomitant]
  7. FUROSEMIDE [Concomitant]

REACTIONS (1)
  - CARDIAC FAILURE CONGESTIVE [None]
